FAERS Safety Report 16627465 (Version 1)
Quarter: 2019Q3

REPORT INFORMATION
  Report Type: Spontaneous
  Country: DE (occurrence: DE)
  Receive Date: 20190724
  Receipt Date: 20190724
  Transmission Date: 20191004
  Serious: Yes (Other)
  Sender: FDA-Public Use
  Company Number: DE-MYLANLABS-2019M1068546

PATIENT
  Age: 15 Year
  Sex: Female
  Weight: 51 kg

DRUGS (4)
  1. LAMOTRIGINE. [Suspect]
     Active Substance: LAMOTRIGINE
     Indication: JUVENILE MYOCLONIC EPILEPSY
     Dosage: UNK
  2. ORFIRIL [Suspect]
     Active Substance: VALPROATE SODIUM
     Dosage: MAX. 3 X 8 ML
     Route: 065
     Dates: start: 201810
  3. ORFIRIL [Suspect]
     Active Substance: VALPROATE SODIUM
     Indication: JUVENILE MYOCLONIC EPILEPSY
     Dosage: MAX. 3 X 8 ML
     Dates: start: 201901
  4. ORFIRIL [Suspect]
     Active Substance: VALPROATE SODIUM
     Dosage: MAX. 3 X 8 ML
     Dates: start: 201306, end: 201809

REACTIONS (2)
  - Rash [Not Recovered/Not Resolved]
  - Drug ineffective [Recovered/Resolved]
